FAERS Safety Report 5825188-7 (Version None)
Quarter: 2008Q3

REPORT INFORMATION
  Report Type: 
  Country: None (occurrence: None)
  Receive Date: 20080729
  Receipt Date: 20080717
  Transmission Date: 20090109
  Serious: Yes (Other)
  Sender: FDA-Public Use
  Company Number: PHBS2003US08268

PATIENT
  Age: 12 Year
  Sex: Male

DRUGS (6)
  1. AREDIA [Suspect]
     Indication: OSTEOGENESIS IMPERFECTA
     Dosage: 10 MG ON 3 CONSECUTIVE DAYS
  2. AREDIA [Suspect]
     Dosage: 60 MG, UNK
  3. AREDIA [Suspect]
     Dosage: 60 MG EVERY 3 WEEKS
  4. AREDIA [Suspect]
     Dosage: 80 MG, UNK
  5. AREDIA [Suspect]
     Dosage: 100 MG, UNK
  6. CALCIUM [Concomitant]

REACTIONS (21)
  - BACK PAIN [None]
  - BLOOD ALKALINE PHOSPHATASE INCREASED [None]
  - BLOOD PARATHYROID HORMONE INCREASED [None]
  - BONE DISORDER [None]
  - BONE PAIN [None]
  - FOOD ALLERGY [None]
  - FOOT FRACTURE [None]
  - HAND FRACTURE [None]
  - HEADACHE [None]
  - HYPERPARATHYROIDISM SECONDARY [None]
  - HYPERPHOSPHATAEMIA [None]
  - IMPAIRED HEALING [None]
  - JAW DISORDER [None]
  - OSTEOPENIA [None]
  - OSTEOPETROSIS [None]
  - OSTEOSCLEROSIS [None]
  - SPINAL DISORDER [None]
  - SPONDYLOLISTHESIS [None]
  - SPONDYLOLYSIS [None]
  - SYNOVITIS [None]
  - ULNA FRACTURE [None]
